FAERS Safety Report 18604287 (Version 4)
Quarter: 2021Q1

REPORT INFORMATION
  Report Type: Spontaneous
  Country: FR (occurrence: FR)
  Receive Date: 20201211
  Receipt Date: 20210205
  Transmission Date: 20210419
  Serious: Yes (Other)
  Sender: FDA-Public Use
  Company Number: FR-SUN PHARMACEUTICAL INDUSTRIES LTD-2020R1-270632

PATIENT
  Age: 73 Year
  Sex: Female

DRUGS (3)
  1. TRAMADOL. [Suspect]
     Active Substance: TRAMADOL
     Dosage: 50 MILLIGRAM, DAILY
     Route: 065
  2. VITAMIN B12 [MECOBALAMIN] [Concomitant]
     Indication: PERNICIOUS ANAEMIA
     Dosage: MONTHLY
     Route: 030
  3. TRAMADOL. [Suspect]
     Active Substance: TRAMADOL
     Indication: BACK PAIN
     Dosage: 200 MILLIGRAM, DAILY
     Route: 065

REACTIONS (1)
  - Cystoid macular oedema [Recovered/Resolved]
